FAERS Safety Report 21185071 (Version 1)
Quarter: 2022Q3

REPORT INFORMATION
  Report Type: Spontaneous
  Country: US (occurrence: US)
  Receive Date: 20220808
  Receipt Date: 20220808
  Transmission Date: 20221027
  Serious: No
  Sender: FDA-Public Use
  Company Number: US-TEVA-2022-US-2058317

PATIENT
  Age: 68 Year
  Sex: Female

DRUGS (2)
  1. AJOVY [Suspect]
     Active Substance: FREMANEZUMAB-VFRM
     Indication: Migraine
     Dosage: STRENGTH: 225 MG/1.5 ML, MONTHLY
     Route: 058
     Dates: start: 2013
  2. AJOVY [Suspect]
     Active Substance: FREMANEZUMAB-VFRM
     Dosage: STRENGTH: 225 MG/1.5 ML, TAKES IN EVERY 21 DAYS
     Route: 058
     Dates: start: 2019

REACTIONS (1)
  - Therapeutic product effect decreased [Unknown]
